FAERS Safety Report 8948104 (Version 4)
Quarter: 2013Q1

REPORT INFORMATION
  Report Type: Spontaneous
  Country: JP (occurrence: JP)
  Receive Date: 20121204
  Receipt Date: 20130124
  Transmission Date: 20140127
  Serious: Yes (Death, Life-Threatening)
  Sender: FDA-Public Use
  Company Number: JP-GLAXOSMITHKLINE-B0848828A

PATIENT
  Age: 55 Year
  Sex: Male
  Weight: 38 kg

DRUGS (9)
  1. LAMICTAL [Suspect]
     Indication: SCHIZOPHRENIA
     Dosage: 25MG PER DAY
     Route: 048
     Dates: start: 20121112, end: 20121118
  2. STRATTERA [Suspect]
     Indication: AFFECT LABILITY
     Dosage: 40MG THREE TIMES PER DAY
     Route: 048
     Dates: start: 20121106, end: 20121118
  3. ZYPREXA [Concomitant]
     Indication: AFFECT LABILITY
     Dosage: 20MG PER DAY
     Route: 048
     Dates: start: 20120101, end: 20121118
  4. CHINESE MEDICINE [Concomitant]
     Indication: AFFECT LABILITY
     Dosage: 2.5G THREE TIMES PER DAY
     Route: 048
     Dates: start: 20120101, end: 20121118
  5. FERROMIA [Concomitant]
     Indication: ANAEMIA
     Dosage: 1.2G TWICE PER DAY
     Route: 048
     Dates: start: 20120101, end: 20121118
  6. BENZALIN [Concomitant]
     Indication: INSOMNIA
     Dosage: 5MG PER DAY
     Route: 048
     Dates: start: 20120101, end: 20121118
  7. ROHYPNOL [Concomitant]
     Indication: INSOMNIA
     Dosage: 2MG PER DAY
     Route: 048
     Dates: start: 20120101, end: 20121118
  8. VEGETAMIN A [Concomitant]
     Indication: INSOMNIA
     Dosage: 1IUAX PER DAY
     Route: 048
     Dates: start: 20120101, end: 20121118
  9. LENDORMIN [Concomitant]
     Route: 048

REACTIONS (10)
  - Hepatic function abnormal [Not Recovered/Not Resolved]
  - Pneumonia [Fatal]
  - Hepatitis acute [Unknown]
  - Pyrexia [Unknown]
  - Aspartate aminotransferase increased [Unknown]
  - Alanine aminotransferase increased [Unknown]
  - Blood alkaline phosphatase increased [Unknown]
  - Gamma-glutamyltransferase increased [Unknown]
  - White blood cell count increased [Unknown]
  - C-reactive protein increased [Unknown]
